FAERS Safety Report 9703353 (Version 2)
Quarter: 2013Q4

REPORT INFORMATION
  Report Type: Report from Study
  Country: US (occurrence: US)
  Receive Date: 20131122
  Receipt Date: 20131216
  Transmission Date: 20140711
  Serious: Yes (Hospitalization)
  Sender: FDA-Public Use
  Company Number: PHEH2013US024253

PATIENT
  Age: 14 Year
  Sex: Female
  Weight: 80 kg

DRUGS (4)
  1. TOBI [Suspect]
     Indication: CYSTIC FIBROSIS
     Dosage: 112 MG, BID
     Route: 055
     Dates: start: 201310, end: 201311
  2. PULMOZYME [Concomitant]
     Dosage: UNK
  3. ZENPEP [Concomitant]
     Dosage: UNK
  4. VITAMAN [Concomitant]

REACTIONS (1)
  - Pneumonia [Recovered/Resolved]
